FAERS Safety Report 19444709 (Version 6)
Quarter: 2022Q1

REPORT INFORMATION
  Report Type: Spontaneous
  Country: AR (occurrence: AR)
  Receive Date: 20210621
  Receipt Date: 20220321
  Transmission Date: 20220423
  Serious: Yes (Other)
  Sender: FDA-Public Use
  Company Number: AR-MYLANLABS-2020M1088992

PATIENT
  Age: 23 Year
  Sex: Male

DRUGS (3)
  1. CLOZAPINE [Suspect]
     Active Substance: CLOZAPINE
     Indication: Schizophrenia
     Dosage: 250 MILLIGRAM, QD
     Dates: start: 20190613
  2. CLOZAPINE [Suspect]
     Active Substance: CLOZAPINE
     Dosage: 250-300 MG/DAY
  3. FOLIC ACID [Concomitant]
     Active Substance: FOLIC ACID
     Dosage: 5 MILLIGRAM, QD

REACTIONS (5)
  - Neutropenia [Recovered/Resolved]
  - Eosinophil count decreased [Unknown]
  - Lymphocyte count increased [Unknown]
  - Monocyte count increased [Unknown]
  - Platelet count decreased [Unknown]

NARRATIVE: CASE EVENT DATE: 20201014
